FAERS Safety Report 22125943 (Version 1)
Quarter: 2023Q1

REPORT INFORMATION
  Report Type: Spontaneous
  Country: IQ (occurrence: IQ)
  Receive Date: 20230322
  Receipt Date: 20230322
  Transmission Date: 20230418
  Serious: Yes (Death, Other)
  Sender: FDA-Public Use
  Company Number: IQ-SA-SAC20230130000370

PATIENT
  Age: 6 Month
  Sex: Female
  Weight: 8.5 kg

DRUGS (3)
  1. MYOZYME [Suspect]
     Active Substance: ALGLUCOSIDASE ALFA
     Indication: Glycogen storage disease type II
     Dosage: 20 MG/KG, QOW
     Route: 065
     Dates: end: 20220919
  2. HYDROCORTISONE [Concomitant]
     Active Substance: HYDROCORTISONE
     Indication: Premedication
     Dosage: 100 MG VIAL
     Dates: start: 20210728
  3. DIPHENHYDRAMINE [Concomitant]
     Active Substance: DIPHENHYDRAMINE
     Indication: Premedication
     Dosage: 50 MG AMPOULE
     Dates: start: 20210728

REACTIONS (8)
  - Respiratory failure [Fatal]
  - Therapeutic product effect decreased [Fatal]
  - Respiratory tract infection [Fatal]
  - Glycogen storage disease type II [Fatal]
  - Condition aggravated [Fatal]
  - Muscular weakness [Fatal]
  - Hypotonia [Unknown]
  - Cardiomegaly [Unknown]
